FAERS Safety Report 21820106 (Version 1)
Quarter: 2023Q1

REPORT INFORMATION
  Report Type: Spontaneous
  Country: ZA (occurrence: ZA)
  Receive Date: 20230105
  Receipt Date: 20230105
  Transmission Date: 20230418
  Serious: Yes (Hospitalization)
  Sender: FDA-Public Use
  Company Number: ZA-35507-2022-14572

PATIENT

DRUGS (12)
  1. HYDROCHLOROTHIAZIDE\LISINOPRIL [Suspect]
     Active Substance: HYDROCHLOROTHIAZIDE\LISINOPRIL
     Indication: Hypertension
     Dosage: 20/12.5 MG
     Route: 048
  2. BISOPROLOL FUMARATE [Suspect]
     Active Substance: BISOPROLOL FUMARATE
     Indication: Hypertension
     Dosage: 5 MILLIGRAM
     Route: 048
  3. LANSOPRAZOLE [Suspect]
     Active Substance: LANSOPRAZOLE
     Indication: Ulcer
     Dosage: 30 MILLIGRAM
     Route: 048
  4. DULOXETINE HYDROCHLORIDE [Suspect]
     Active Substance: DULOXETINE HYDROCHLORIDE
     Indication: Depression
     Dosage: 60 MILLIGRAM
     Route: 048
  5. ROSUVASTATIN [Suspect]
     Active Substance: ROSUVASTATIN
     Indication: Blood cholesterol abnormal
     Dosage: 40 MILLIGRAM
     Route: 048
  6. EUTHYROX [Suspect]
     Active Substance: LEVOTHYROXINE SODIUM
     Indication: Hypothyroidism
     Dosage: 100 MICROGRAM
     Route: 048
  7. METFORMIN HYDROCHLORIDE [Suspect]
     Active Substance: METFORMIN HYDROCHLORIDE
     Indication: Diabetes mellitus
     Dosage: 850 MILLIGRAM
     Route: 048
  8. FUROSEMIDE [Suspect]
     Active Substance: FUROSEMIDE
     Indication: Hypertension
     Dosage: 40 MILLIGRAM
     Route: 048
  9. SPIRONOLACTONE [Suspect]
     Active Substance: SPIRONOLACTONE
     Indication: Hypertension
     Dosage: 25 MILLIGRAM
     Route: 048
  10. ISMO [Suspect]
     Active Substance: ISOSORBIDE MONONITRATE
     Indication: Cardiac failure chronic
     Dosage: 20 MILLIGRAM
     Route: 048
  11. TEGRETOL XR [Suspect]
     Active Substance: CARBAMAZEPINE
     Indication: Epilepsy
     Dosage: 200 MILLIGRAM
     Route: 048
  12. PREGABALIN [Suspect]
     Active Substance: PREGABALIN
     Indication: Epilepsy
     Dosage: 150 MILLIGRAM
     Route: 048

REACTIONS (1)
  - Cardiac disorder [Unknown]
